FAERS Safety Report 7343100-9 (Version None)
Quarter: 2011Q1

REPORT INFORMATION
  Report Type: 
  Country: None (occurrence: None)
  Receive Date: 20110310
  Receipt Date: 20110225
  Transmission Date: 20110831
  Serious: Yes (Hospitalization)
  Sender: FDA-Public Use
  Company Number: IT-ELI_LILLY_AND_COMPANY-IT201102007039

PATIENT
  Sex: Male

DRUGS (2)
  1. VITAMINS, OTHER COMBINATIONS [Concomitant]
     Dosage: 1 D/F, UNK
  2. CIALIS [Suspect]
     Indication: ERECTILE DYSFUNCTION
     Dosage: 1 D/F, UNK
     Route: 048
     Dates: start: 20110222, end: 20110222

REACTIONS (4)
  - HYPOTENSION [None]
  - SYNCOPE [None]
  - DIZZINESS [None]
  - LOSS OF CONSCIOUSNESS [None]
